FAERS Safety Report 19587505 (Version 10)
Quarter: 2022Q4

REPORT INFORMATION
  Report Type: Report from Study
  Country: JP (occurrence: JP)
  Receive Date: 20210721
  Receipt Date: 20221101
  Transmission Date: 20230113
  Serious: Yes (Life-Threatening, Hospitalization, Other)
  Sender: FDA-Public Use
  Company Number: JP-BRISTOL-MYERS SQUIBB COMPANY-BMS-2021-016251

PATIENT
  Age: 53 Year
  Sex: Male
  Weight: 89.1 kg

DRUGS (46)
  1. YERVOY [Suspect]
     Active Substance: IPILIMUMAB
     Indication: Metastatic renal cell carcinoma
     Dosage: 1 MG/KG
     Route: 041
     Dates: start: 20210120, end: 20210120
  2. YERVOY [Suspect]
     Active Substance: IPILIMUMAB
     Dosage: 1 MG/KG
     Route: 041
     Dates: start: 20210322, end: 20210412
  3. YERVOY [Suspect]
     Active Substance: IPILIMUMAB
     Dosage: 1 MILLIGRAM/KILOGRAM
     Route: 041
     Dates: start: 20210412, end: 20210412
  4. OPDIVO [Suspect]
     Active Substance: NIVOLUMAB
     Indication: Metastatic renal cell carcinoma
     Dosage: 240 MILLIGRAM
     Route: 041
     Dates: start: 20210120, end: 20210120
  5. OPDIVO [Suspect]
     Active Substance: NIVOLUMAB
     Dosage: 240 MILLIGRAM
     Route: 041
     Dates: start: 20210322, end: 20210322
  6. OPDIVO [Suspect]
     Active Substance: NIVOLUMAB
     Dosage: 240 MILLIGRAM
     Route: 041
     Dates: start: 20210412, end: 20210412
  7. LOPERAMIDE HYDROCHLORIDE [Suspect]
     Active Substance: LOPERAMIDE HYDROCHLORIDE
     Indication: Colitis
     Dosage: 4 MG, EVERYDAY
     Route: 048
     Dates: start: 20210213, end: 20210303
  8. LOPERAMIDE HYDROCHLORIDE [Suspect]
     Active Substance: LOPERAMIDE HYDROCHLORIDE
  9. CABOMETYX [Suspect]
     Active Substance: CABOZANTINIB S-MALATE
     Indication: Metastatic renal cell carcinoma
     Dosage: 60 MG, EVERYDAY
     Route: 048
     Dates: start: 20210502, end: 20210514
  10. CABOMETYX [Suspect]
     Active Substance: CABOZANTINIB S-MALATE
     Indication: Malignant neoplasm progression
     Dosage: 40 MG, EVERYDAY
     Route: 048
     Dates: start: 20210607, end: 20210701
  11. CABOMETYX [Suspect]
     Active Substance: CABOZANTINIB S-MALATE
     Dosage: 20 MG, EVERYDAY
     Route: 048
     Dates: start: 20210708
  12. PREDNISOLONE [Suspect]
     Active Substance: PREDNISOLONE
     Indication: Colitis
     Dosage: 20 MG, Q12H
     Route: 048
     Dates: start: 20210222, end: 20210224
  13. PREDNISOLONE [Suspect]
     Active Substance: PREDNISOLONE
     Dosage: 15 MG, Q12H
     Route: 048
     Dates: start: 20210225, end: 20210308
  14. PREDNISOLONE [Suspect]
     Active Substance: PREDNISOLONE
     Dosage: 25 MG, EVERYDAY
     Route: 048
     Dates: start: 20210309, end: 20210315
  15. PREDNISOLONE [Suspect]
     Active Substance: PREDNISOLONE
     Dosage: 20 MG, EVERYDAY
     Route: 048
     Dates: start: 20210316, end: 20210318
  16. PREDNISOLONE [Suspect]
     Active Substance: PREDNISOLONE
     Dosage: 15 MG, EVERYDAY
     Route: 048
     Dates: start: 20210319, end: 20210321
  17. PREDNISOLONE [Suspect]
     Active Substance: PREDNISOLONE
     Dosage: 10 MG, EVERYDAY
     Route: 048
     Dates: start: 20210322, end: 20210416
  18. PREDNISOLONE [Suspect]
     Active Substance: PREDNISOLONE
     Dosage: 40 MG, EVERYDAY
     Route: 048
     Dates: start: 20210426, end: 20210429
  19. PREDNISOLONE [Suspect]
     Active Substance: PREDNISOLONE
     Dosage: 30 MG, EVERYDAY
     Route: 048
     Dates: start: 20210430, end: 20210505
  20. PREDNISOLONE [Suspect]
     Active Substance: PREDNISOLONE
     Dosage: 40 MG, EVERYDAY
     Route: 048
     Dates: start: 20210506, end: 20210511
  21. PREDNISOLONE [Suspect]
     Active Substance: PREDNISOLONE
     Dosage: 30 MG, EVERYDAY
     Route: 048
     Dates: start: 20210512, end: 20210530
  22. PREDNISOLONE [Suspect]
     Active Substance: PREDNISOLONE
     Dosage: 20 MG, EVERYDAY
     Route: 048
     Dates: start: 20210531, end: 20210606
  23. PREDNISOLONE [Suspect]
     Active Substance: PREDNISOLONE
     Dosage: 15 MG, EVERYDAY
     Route: 048
     Dates: start: 20210607, end: 20210615
  24. PREDNISOLONE [Suspect]
     Active Substance: PREDNISOLONE
     Dosage: 10 MG, EVERYDAY
     Route: 048
     Dates: start: 20210616, end: 20210622
  25. PREDNISOLONE [Suspect]
     Active Substance: PREDNISOLONE
     Dosage: 7.5 MG, EVERYDAY
     Route: 048
     Dates: start: 20210623, end: 20210629
  26. PREDNISOLONE [Suspect]
     Active Substance: PREDNISOLONE
     Dosage: 5 MG, EVERYDAY
     Route: 048
     Dates: start: 20210630, end: 20210725
  27. PREDNISOLONE [Suspect]
     Active Substance: PREDNISOLONE
     Dosage: 90 MILLIGRAM, QD
     Route: 041
     Dates: start: 20210213, end: 20210215
  28. PREDNISOLONE [Suspect]
     Active Substance: PREDNISOLONE
     Dosage: 70 MILLIGRAM, QD
     Route: 041
     Dates: start: 20210216, end: 20210218
  29. PREDNISOLONE [Suspect]
     Active Substance: PREDNISOLONE
     Dosage: 50 MILLIGRAM, QD
     Route: 041
     Dates: start: 20210219, end: 20210221
  30. SODIUM FERROUS CITRATE [Suspect]
     Active Substance: SODIUM FERROUS CITRATE
     Indication: Haemoglobin decreased
     Dosage: 200 MG, EVERYDAY
     Route: 048
     Dates: start: 20210217, end: 20210224
  31. SODIUM FERROUS CITRATE [Suspect]
     Active Substance: SODIUM FERROUS CITRATE
     Indication: Haematuria
     Dosage: 200 MG, EVERYDAY
     Route: 048
     Dates: end: 20210303
  32. SODIUM FERROUS CITRATE [Suspect]
     Active Substance: SODIUM FERROUS CITRATE
     Indication: Haemoglobin decreased
     Dosage: 200 MILLIGRAM, QD
     Route: 048
     Dates: start: 20210303
  33. BISOPROLOL FUMARATE [Suspect]
     Active Substance: BISOPROLOL FUMARATE
     Indication: Hypertension
     Dosage: 5 MG, EVERYDAY
     Route: 048
     Dates: end: 20210303
  34. BISOPROLOL FUMARATE [Suspect]
     Active Substance: BISOPROLOL FUMARATE
     Dosage: 5 MG
     Route: 048
     Dates: start: 20210308
  35. BISOPROLOL FUMARATE [Suspect]
     Active Substance: BISOPROLOL FUMARATE
     Dosage: 5 MILLIGRAM, QD
     Route: 048
     Dates: start: 20201228, end: 20210303
  36. BENZBROMARONE [Suspect]
     Active Substance: BENZBROMARONE
     Indication: Hyperuricaemia
     Dosage: 50 MG, EVERYDAY, LAST ADMINISTRATION DATE:2021/03/03
     Route: 048
  37. BENZBROMARONE [Suspect]
     Active Substance: BENZBROMARONE
     Dosage: 50 MILLIGRAM, QD
     Route: 048
     Dates: start: 20201228, end: 20210303
  38. BENZBROMARONE [Suspect]
     Active Substance: BENZBROMARONE
     Dosage: 50 MG, EVERYDAY, LAST ADMINISTRATION DATE:2021/03/03
     Route: 048
  39. BEZAFIBRATE [Suspect]
     Active Substance: BEZAFIBRATE
     Indication: Hyperlipidaemia
     Dosage: 400 MG, EVERYDAY, LAST ADMINISTRATION DATE:2021/03/03
     Route: 048
  40. BEZAFIBRATE [Suspect]
     Active Substance: BEZAFIBRATE
     Dosage: 400 MILLIGRAM, QD
     Route: 048
     Dates: start: 20201228, end: 20210303
  41. BEZAFIBRATE [Suspect]
     Active Substance: BEZAFIBRATE
     Dosage: 400 MG, EVERYDAY, LAST ADMINISTRATION DATE:2021/03/03
     Route: 048
  42. EDOXABAN TOSYLATE [Concomitant]
     Active Substance: EDOXABAN TOSYLATE
     Indication: Product used for unknown indication
     Dosage: 60 MG, EVERYDAY
     Route: 065
  43. EDOXABAN TOSYLATE [Concomitant]
     Active Substance: EDOXABAN TOSYLATE
     Dosage: 30 MG, EVERYDAY
     Route: 065
     Dates: start: 20210214, end: 20210215
  44. EDOXABAN TOSYLATE [Concomitant]
     Active Substance: EDOXABAN TOSYLATE
     Dosage: 60 MILLIGRAM
     Route: 065
     Dates: end: 20210214
  45. EDOXABAN TOSYLATE [Concomitant]
     Active Substance: EDOXABAN TOSYLATE
     Dosage: 60 MILLIGRAM, QD
     Route: 065
  46. EDOXABAN TOSYLATE [Concomitant]
     Active Substance: EDOXABAN TOSYLATE
     Dosage: 60 MG, EVERYDAY
     Route: 065

REACTIONS (14)
  - Colitis [Recovered/Resolved]
  - Haematuria [Recovered/Resolved]
  - Malignant neoplasm progression [Recovering/Resolving]
  - White blood cell count decreased [Recovered/Resolved]
  - Febrile neutropenia [Recovered/Resolved]
  - Hepatic function abnormal [Recovered/Resolved]
  - Shock haemorrhagic [Unknown]
  - Disseminated intravascular coagulation [Unknown]
  - Hyperkalaemia [Unknown]
  - Liver disorder [Recovering/Resolving]
  - Adjusted calcium decreased [Unknown]
  - Oedema peripheral [Recovering/Resolving]
  - Blood sodium decreased [Unknown]
  - Anaemia [Unknown]

NARRATIVE: CASE EVENT DATE: 20210127
